FAERS Safety Report 13345719 (Version 1)
Quarter: 2017Q1

REPORT INFORMATION
  Report Type: Spontaneous
  Country: FR (occurrence: FR)
  Receive Date: 20170317
  Receipt Date: 20170317
  Transmission Date: 20170428
  Serious: Yes (Hospitalization)
  Sender: FDA-Public Use
  Company Number: FR-GUERBET LLC-1064340

PATIENT
  Age: 44 Year
  Sex: Female

DRUGS (1)
  1. DOTAREM [Suspect]
     Active Substance: GADOTERATE MEGLUMINE
     Indication: NUCLEAR MAGNETIC RESONANCE IMAGING
     Route: 042
     Dates: start: 20170306, end: 20170306

REACTIONS (6)
  - Type I hypersensitivity [Recovering/Resolving]
  - Nausea [Recovering/Resolving]
  - Urticaria [Recovering/Resolving]
  - Laryngeal discomfort [Recovering/Resolving]
  - Laryngeal oedema [Recovering/Resolving]
  - Vomiting [Recovering/Resolving]

NARRATIVE: CASE EVENT DATE: 20170306
